FAERS Safety Report 13162225 (Version 1)
Quarter: 2017Q1

REPORT INFORMATION
  Report Type: Spontaneous
  Country: US (occurrence: US)
  Receive Date: 20170126
  Receipt Date: 20170126
  Transmission Date: 20170428
  Serious: Yes (Death)
  Sender: FDA-Public Use
  Company Number: None

PATIENT
  Age: 7 Year
  Sex: Male

DRUGS (1)
  1. PROLEUKIN [Suspect]
     Active Substance: ALDESLEUKIN
     Indication: CHRONIC GRAFT VERSUS HOST DISEASE
     Dosage: 720,000 UNITS (0.04ML)
     Route: 042
     Dates: start: 20160428, end: 20161210

REACTIONS (1)
  - Death [None]

NARRATIVE: CASE EVENT DATE: 20161210
